FAERS Safety Report 15738765 (Version 2)
Quarter: 2018Q4

REPORT INFORMATION
  Report Type: Report from Study
  Country: None (occurrence: US)
  Receive Date: 20181219
  Receipt Date: 20181225
  Transmission Date: 20190205
  Serious: Yes (Other)
  Sender: FDA-Public Use
  Company Number: US-ABBVIE-18K-163-2589611-00

PATIENT
  Sex: Female

DRUGS (1)
  1. HUMIRA [Suspect]
     Active Substance: ADALIMUMAB
     Indication: CROHN^S DISEASE
     Route: 058

REACTIONS (21)
  - Intestinal perforation [Unknown]
  - Haematochezia [Unknown]
  - Dry mouth [Unknown]
  - Arthralgia [Unknown]
  - Anal incontinence [Unknown]
  - Abnormal faeces [Unknown]
  - Flatulence [Unknown]
  - Abdominal discomfort [Unknown]
  - Constipation [Unknown]
  - Intestinal fistula [Unknown]
  - Injection site pain [Unknown]
  - Asthenia [Unknown]
  - Diarrhoea [Unknown]
  - Toothache [Unknown]
  - Papule [Unknown]
  - Pain in extremity [Unknown]
  - Dehydration [Unknown]
  - Gingival pain [Unknown]
  - Abdominal hernia [Unknown]
  - Gastrointestinal inflammation [Unknown]
  - Abdominal pain [Unknown]
